FAERS Safety Report 4438457-2 (Version None)
Quarter: 2004Q3

REPORT INFORMATION
  Report Type: 
  Country: None (occurrence: None)
  Receive Date: 20040728
  Receipt Date: 20040324
  Transmission Date: 20050211
  Serious: No
  Sender: FDA-Public Use
  Company Number: USA040363049

PATIENT
  Age: 35 Year
  Sex: Male
  Weight: 123 kg

DRUGS (3)
  1. STRATTERA [Suspect]
     Indication: ATTENTION DEFICIT/HYPERACTIVITY DISORDER
     Dosage: 60 MG DAY
     Dates: start: 20040301
  2. NEXIUM [Concomitant]
  3. CLARITIN [Concomitant]

REACTIONS (2)
  - FATIGUE [None]
  - GASTROOESOPHAGEAL REFLUX DISEASE [None]
